FAERS Safety Report 19483427 (Version 1)
Quarter: 2021Q3

REPORT INFORMATION
  Report Type: Spontaneous
  Country: PT (occurrence: PT)
  Receive Date: 20210701
  Receipt Date: 20210701
  Transmission Date: 20211014
  Serious: Yes (Other)
  Sender: FDA-Public Use
  Company Number: PT-MYLANLABS-2021M1038420

PATIENT
  Age: 6 Decade
  Sex: Female

DRUGS (1)
  1. ERLOTINIB [Suspect]
     Active Substance: ERLOTINIB
     Indication: LUNG ADENOCARCINOMA STAGE IV
     Dosage: 150 MILLIGRAM FIRST?LINE TREATMENT
     Route: 065
     Dates: start: 201302

REACTIONS (1)
  - Drug resistance [Unknown]
